FAERS Safety Report 7765144-5 (Version None)
Quarter: 2011Q3

REPORT INFORMATION
  Report Type: 
  Country: None (occurrence: None)
  Receive Date: 20110921
  Receipt Date: 20110914
  Transmission Date: 20111222
  Serious: Yes (Hospitalization)
  Sender: FDA-Public Use
  Company Number: US-ROCHE-803519

PATIENT
  Age: 44 Year
  Sex: Female
  Weight: 83.8 kg

DRUGS (3)
  1. CISPLATIN [Suspect]
     Indication: SQUAMOUS CELL CARCINOMA OF THE CERVIX
     Dosage: ON DAY 1, TOTAL DOSE: 100 MG, LAST DOSE PRIOR TO SAE: 03 AUGUST 2011
     Route: 042
     Dates: start: 20110608
  2. BEVACIZUMAB [Suspect]
     Indication: SQUAMOUS CELL CARCINOMA OF THE CERVIX
     Dosage: OVER 30-90 MIN ON DAY 1, TOTAL DOSE: 1356 MG, LAST DOSE PRIOR TO SAE: 03 AUGUST 2011
     Route: 042
     Dates: start: 20110608
  3. PACLITAXEL [Suspect]
     Indication: SQUAMOUS CELL CARCINOMA OF THE CERVIX
     Dosage: OVER 3 HOURS ON DAY 1, TOTAL DOSE: 350 MG, LAST DOSE PRIOR TO SAE: 03 AUGUST 2011
     Route: 042
     Dates: start: 20110608

REACTIONS (6)
  - GASTROENTERITIS RADIATION [None]
  - HAEMOGLOBIN [None]
  - PROCTITIS [None]
  - HAEMATOCRIT DECREASED [None]
  - GASTROINTESTINAL ARTERIOVENOUS MALFORMATION [None]
  - HAEMOGLOBIN ABNORMAL [None]
